FAERS Safety Report 12209079 (Version 1)
Quarter: 2016Q1

REPORT INFORMATION
  Report Type: Spontaneous
  Country: IT (occurrence: IT)
  Receive Date: 20160324
  Receipt Date: 20160324
  Transmission Date: 20160526
  Serious: Yes (Hospitalization)
  Sender: FDA-Public Use
  Company Number: IT-PFIZER INC-2016168238

PATIENT
  Age: 42 Year
  Sex: Female

DRUGS (5)
  1. ARTROSILENE [Suspect]
     Active Substance: KETOPROFEN
     Indication: HEADACHE
     Dosage: 1 DF, AS NEEDED
     Route: 030
  2. CONTRAMAL [Suspect]
     Active Substance: TRAMADOL HYDROCHLORIDE
     Indication: HEADACHE
     Dosage: 1 DF, AS NEEDED
     Route: 030
     Dates: start: 20150901, end: 20160307
  3. TORA-DOL [Suspect]
     Active Substance: KETOROLAC TROMETHAMINE
     Indication: HEADACHE
     Dosage: 1 DF, AS NEEDED
     Route: 030
     Dates: start: 20150901, end: 20160307
  4. ANAFRANIL [Concomitant]
     Active Substance: CLOMIPRAMINE HYDROCHLORIDE
  5. RELPAX [Suspect]
     Active Substance: ELETRIPTAN HYDROBROMIDE
     Indication: HEADACHE
     Dosage: 4 DF, DAILY
     Route: 048
     Dates: start: 20150901, end: 20160307

REACTIONS (6)
  - Headache [Recovering/Resolving]
  - Insomnia [Recovering/Resolving]
  - Drug abuse [Recovering/Resolving]
  - Hypertransaminasaemia [Recovering/Resolving]
  - Sinus tachycardia [Recovering/Resolving]
  - Product use issue [Recovering/Resolving]

NARRATIVE: CASE EVENT DATE: 20150901
